FAERS Safety Report 6641565-9 (Version None)
Quarter: 2010Q1

REPORT INFORMATION
  Report Type: 
  Country: None (occurrence: None)
  Receive Date: 20100317
  Receipt Date: 20100317
  Transmission Date: 20100710
  Serious: Yes (Other)
  Sender: FDA-Public Use
  Company Number: None

PATIENT
  Age: 49 Year
  Sex: Female
  Weight: 10 kg

DRUGS (13)
  1. MORPHINE [Suspect]
     Indication: PAIN
     Dosage: 45 MG Q12O PO
     Route: 048
     Dates: start: 20100113
  2. WARFARIN SODIUM [Concomitant]
  3. AMIODARONE HCL [Concomitant]
  4. ASCORBIC ACID [Concomitant]
  5. ASPIRIN [Concomitant]
  6. ATORVASTATIN CALCIUM [Concomitant]
  7. CARVEDILOL [Concomitant]
  8. CLOPIDOGREL [Concomitant]
  9. DOCUSATE [Concomitant]
  10. ESCITALOPRAM [Concomitant]
  11. LIDOCAINE [Concomitant]
  12. SENNA [Concomitant]
  13. CAPECITABINE [Concomitant]

REACTIONS (6)
  - DROOLING [None]
  - HYPOTONIA [None]
  - MIOSIS [None]
  - NYSTAGMUS [None]
  - RESPIRATORY DEPRESSION [None]
  - SOMNOLENCE [None]
